FAERS Safety Report 22329084 (Version 1)
Quarter: 2023Q2

REPORT INFORMATION
  Report Type: Spontaneous
  Country: US (occurrence: None)
  Receive Date: 20230517
  Receipt Date: 20230517
  Transmission Date: 20230722
  Serious: No
  Sender: FDA-Public Use
  Company Number: US-ROCHE-3172529

PATIENT
  Age: 64 Year
  Sex: Male

DRUGS (1)
  1. FUZEON [Suspect]
     Active Substance: ENFUVIRTIDE
     Indication: HIV infection
     Dosage: ONGOING: YES
     Route: 058
     Dates: start: 202208

REACTIONS (1)
  - Inflammatory pain [Not Recovered/Not Resolved]

NARRATIVE: CASE EVENT DATE: 20220801
